FAERS Safety Report 4551867-8 (Version None)
Quarter: 2005Q1

REPORT INFORMATION
  Report Type: 
  Country: None (occurrence: None)
  Receive Date: 20050112
  Receipt Date: 20041229
  Transmission Date: 20050727
  Serious: Yes (Hospitalization)
  Sender: FDA-Public Use
  Company Number: FABR-10942

PATIENT
  Age: 30 Year
  Sex: Male
  Weight: 101.5 kg

DRUGS (3)
  1. FABRAZYME [Suspect]
     Indication: FABRY'S DISEASE
     Dosage: 1 MG/KG Q2WKS IV
     Route: 042
     Dates: start: 20030918
  2. ZOLOFT [Concomitant]
  3. FLONASE [Concomitant]

REACTIONS (14)
  - BLOOD ALBUMIN DECREASED [None]
  - BLOOD CALCIUM DECREASED [None]
  - BLOOD CREATININE DECREASED [None]
  - BLOOD POTASSIUM DECREASED [None]
  - BLOOD UREA DECREASED [None]
  - CALCIUM IONISED DECREASED [None]
  - CHEST PAIN [None]
  - FATIGUE [None]
  - FEELING ABNORMAL [None]
  - HYPOCALCAEMIA [None]
  - HYPOKALAEMIA [None]
  - OEDEMA PERIPHERAL [None]
  - PAIN [None]
  - PROTEIN TOTAL DECREASED [None]
